FAERS Safety Report 8136814-4 (Version None)
Quarter: 2012Q1

REPORT INFORMATION
  Report Type: 
  Country: None (occurrence: None)
  Receive Date: 20120214
  Receipt Date: 20120203
  Transmission Date: 20120608
  Serious: Yes (Death, Other)
  Sender: FDA-Public Use
  Company Number: GB-NOVOPROD-344216

PATIENT
  Age: 49 Year
  Sex: Female
  Weight: 94.3 kg

DRUGS (7)
  1. VICTOZA [Suspect]
     Indication: TYPE 2 DIABETES MELLITUS
     Dosage: 1.2 MG, QD
     Route: 058
     Dates: start: 20101101, end: 20110507
  2. ASPIRIN [Concomitant]
  3. SIMVASTATIN [Concomitant]
  4. LEVEMIR [Concomitant]
     Indication: TYPE 2 DIABETES MELLITUS
  5. VICTOZA [Suspect]
     Indication: BODY MASS INDEX INCREASED
  6. NOVORAPID [Concomitant]
  7. RAMIPRIL [Concomitant]

REACTIONS (1)
  - GASTRIC CANCER [None]
